FAERS Safety Report 12593828 (Version 1)
Quarter: 2016Q3

REPORT INFORMATION
  Report Type: Spontaneous
  Country: US (occurrence: US)
  Receive Date: 20160726
  Receipt Date: 20160726
  Transmission Date: 20161109
  Serious: No
  Sender: FDA-Public Use
  Company Number: US-UNITED THERAPEUTICS-UNT-2016-006958

PATIENT
  Age: 67 Year
  Sex: Male
  Weight: 87.98 kg

DRUGS (1)
  1. REMODULIN [Suspect]
     Active Substance: TREPROSTINIL
     Indication: PULMONARY ARTERIAL HYPERTENSION
     Dosage: 0.008 ?G/KG,CONTINUING
     Route: 041
     Dates: start: 20160305

REACTIONS (6)
  - Oedema peripheral [Unknown]
  - Chest pain [Unknown]
  - Vision blurred [Unknown]
  - Hypotension [Unknown]
  - Diarrhoea [Unknown]
  - Headache [Recovered/Resolved]

NARRATIVE: CASE EVENT DATE: 201604
